FAERS Safety Report 5305100-X (Version None)
Quarter: 2007Q2

REPORT INFORMATION
  Report Type: 
  Country: None (occurrence: None)
  Receive Date: 20070417
  Receipt Date: 20070412
  Transmission Date: 20071010
  Serious: Yes (Death, Hospitalization)
  Sender: FDA-Public Use
  Company Number: 002#2#2006-00200

PATIENT
  Age: 91 Year
  Sex: Female
  Weight: 48.0813 kg

DRUGS (5)
  1. REGLAN-100MG -TABLET (METOCLOPRAMIDE HCL) [Suspect]
     Indication: IMPAIRED GASTRIC EMPTYING
     Dosage: 10MG, 4 IN 1 D; ORAL
     Route: 048
     Dates: start: 20060401, end: 20060526
  2. REGLAN-100MG -TABLET (METOCLOPRAMIDE HCL) [Suspect]
     Indication: NAUSEA
     Dosage: 10MG, 4 IN 1 D; ORAL
     Route: 048
     Dates: start: 20060401, end: 20060526
  3. REGLAN-100MG -TABLET (METOCLOPRAMIDE HCL) [Suspect]
     Indication: VOMITING
     Dosage: 10MG, 4 IN 1 D; ORAL
     Route: 048
     Dates: start: 20060401, end: 20060526
  4. METOPROLOL SUCCINATE [Concomitant]
  5. PANTOPRAZOLE SODIUM [Concomitant]

REACTIONS (33)
  - ABDOMINAL DISTENSION [None]
  - BACK PAIN [None]
  - BRAIN DEATH [None]
  - CARDIAC ARREST [None]
  - CHOKING [None]
  - DRUG TOXICITY [None]
  - DYSARTHRIA [None]
  - DYSPHAGIA [None]
  - ERYTHEMA [None]
  - FEELING ABNORMAL [None]
  - FEELING HOT [None]
  - FLATULENCE [None]
  - GASTRITIS [None]
  - HEART RATE INCREASED [None]
  - HYPERHIDROSIS [None]
  - HYPERVIGILANCE [None]
  - IMPAIRED GASTRIC EMPTYING [None]
  - JAW DISORDER [None]
  - LACTIC ACIDOSIS [None]
  - MASKED FACIES [None]
  - MOVEMENT DISORDER [None]
  - MUSCLE RIGIDITY [None]
  - MUSCLE SPASMS [None]
  - MUSCULOSKELETAL STIFFNESS [None]
  - NAUSEA [None]
  - ORAL INTAKE REDUCED [None]
  - RENAL DISORDER [None]
  - RESPIRATORY RATE INCREASED [None]
  - SEPSIS [None]
  - TETANUS [None]
  - VOMITING [None]
  - WEIGHT DECREASED [None]
  - WHITE BLOOD CELL COUNT INCREASED [None]
